FAERS Safety Report 24902758 (Version 1)
Quarter: 2025Q1

REPORT INFORMATION
  Report Type: Spontaneous
  Country: GB (occurrence: GB)
  Receive Date: 20250130
  Receipt Date: 20250130
  Transmission Date: 20250408
  Serious: Yes (Death, Life-Threatening, Other)
  Sender: AUROBINDO
  Company Number: GB-MHRA-TPP19795852C11756329YC1735822330096

PATIENT
  Age: 75 Year
  Sex: Female
  Weight: 46 kg

DRUGS (18)
  1. SILDENAFIL [Suspect]
     Active Substance: SILDENAFIL
     Indication: Product use in unapproved indication
     Route: 065
  2. ATORVASTATIN [Concomitant]
     Active Substance: ATORVASTATIN
     Indication: Product use in unapproved indication
     Dosage: 1 DOSAGE FORM, ONCE A DAY
     Route: 065
     Dates: start: 20221102
  3. ASPIRIN [Concomitant]
     Active Substance: ASPIRIN
     Indication: Product use in unapproved indication
     Dosage: 1 DOSAGE FORM, ONCE A DAY
     Route: 065
     Dates: start: 20230214
  4. BISOPROLOL [Concomitant]
     Active Substance: BISOPROLOL
     Indication: Product use in unapproved indication
     Dosage: 1 DOSAGE FORM, ONCE A DAY
     Route: 065
     Dates: start: 20190827
  5. CITALOPRAM [Concomitant]
     Active Substance: CITALOPRAM
     Indication: Product use in unapproved indication
     Dosage: 1 DOSAGE FORM, ONCE A DAY
     Route: 065
     Dates: start: 20211117
  6. CODEINE PHOSPHATE [Concomitant]
     Active Substance: CODEINE PHOSPHATE
     Indication: Product use in unapproved indication
     Dosage: 1 DOSAGE FORM, FOUR TIMES/DAY
     Route: 065
     Dates: start: 20220805
  7. BECLOMETHASONE\FORMOTEROL [Concomitant]
     Active Substance: BECLOMETHASONE\FORMOTEROL
     Indication: Product use in unapproved indication
     Dosage: 1 DOSAGE FORM, TWO TIMES A DAY
     Route: 065
     Dates: start: 20180802
  8. GABAPENTIN [Concomitant]
     Active Substance: GABAPENTIN
     Indication: Product use in unapproved indication
     Dosage: 1 DOSAGE FORM, 3 TIMES A DAY
     Route: 065
     Dates: start: 20190827
  9. HYPROMELLOSES [Concomitant]
     Active Substance: HYPROMELLOSES
     Indication: Product use in unapproved indication
     Route: 065
     Dates: start: 20220819
  10. INDAPAMIDE [Concomitant]
     Active Substance: INDAPAMIDE
     Indication: Product use in unapproved indication
     Dosage: 1 DOSAGE FORM, ONCE A DAY
     Route: 065
     Dates: start: 20180319
  11. IBUPROFEN [Concomitant]
     Active Substance: IBUPROFEN
     Indication: Product use in unapproved indication
     Dosage: 1 DOSAGE FORM, 3 TIMES A DAY
     Route: 065
     Dates: start: 20180802
  12. LIXISENATIDE [Concomitant]
     Active Substance: LIXISENATIDE
     Indication: Product use in unapproved indication
     Route: 065
     Dates: start: 20180213
  13. INSULIN ASPART [Concomitant]
     Active Substance: INSULIN ASPART
     Indication: Product use in unapproved indication
     Route: 065
     Dates: start: 20180319
  14. ACETAMINOPHEN [Concomitant]
     Active Substance: ACETAMINOPHEN
     Indication: Product use in unapproved indication
     Dosage: 2 DOSAGE FORM, FOUR TIMES/DAY
     Route: 065
     Dates: start: 20180621
  15. RANITIDINE [Concomitant]
     Active Substance: RANITIDINE
     Indication: Product use in unapproved indication
     Dosage: 1 DOSAGE FORM, ONCE A DAY
     Route: 065
     Dates: start: 20161108
  16. ALBUTEROL [Concomitant]
     Active Substance: ALBUTEROL
     Indication: Product use in unapproved indication
     Dates: start: 20161108
  17. VENTOLIN [Concomitant]
     Active Substance: ALBUTEROL SULFATE
     Indication: Product use in unapproved indication
     Dates: start: 20190828
  18. Vagirux [Concomitant]
     Indication: Product use in unapproved indication
     Dosage: 1 DOSAGE FORM, EVERY WEEK(INSERT ONE WEEKLY. WASH APPLICATOR AFTER AND BE...)
     Route: 065
     Dates: start: 20221102

REACTIONS (2)
  - Pharyngeal swelling [Fatal]
  - Anaphylactic reaction [Not Recovered/Not Resolved]
